FAERS Safety Report 4308307-3 (Version None)
Quarter: 2004Q1

REPORT INFORMATION
  Report Type: 
  Country: None (occurrence: None)
  Receive Date: 20040301
  Receipt Date: 20031204
  Transmission Date: 20041129
  Serious: No
  Sender: FDA-Public Use
  Company Number: US-BRISTOL-MYERS SQUIBB COMPANY-12450078

PATIENT
  Age: 54 Year
  Sex: Male
  Weight: 104 kg

DRUGS (5)
  1. GLUCOPHAGE [Suspect]
     Indication: DIABETES MELLITUS
     Dosage: THERAPY FROM:  ^FEW YEARS AGO^
     Route: 048
  2. VERAPAMIL [Concomitant]
  3. TRICOR [Concomitant]
  4. PENTASA [Concomitant]
  5. CELEBREX [Concomitant]

REACTIONS (1)
  - BLOOD GLUCOSE INCREASED [None]
